FAERS Safety Report 10216767 (Version 2)
Quarter: 2014Q3

REPORT INFORMATION
  Report Type: Spontaneous
  Country: FR (occurrence: FR)
  Receive Date: 20140604
  Receipt Date: 20140703
  Transmission Date: 20150326
  Serious: Yes (Other)
  Sender: FDA-Public Use
  Company Number: FR-ELI_LILLY_AND_COMPANY-FR201405008615

PATIENT
  Age: 54 Year
  Sex: Female

DRUGS (5)
  1. IMOVANE [Concomitant]
     Active Substance: ZOPICLONE
     Dosage: 7.5 MG, QD
     Route: 048
     Dates: start: 2012, end: 20140616
  2. CYMBALTA [Suspect]
     Active Substance: DULOXETINE HYDROCHLORIDE
     Indication: DEPRESSION
     Dosage: 60 MG, QD
     Route: 048
     Dates: start: 20130717, end: 201404
  3. TERCIAN                            /00759301/ [Concomitant]
     Active Substance: CYAMEMAZINE
     Dosage: 5 DROPS, QD
     Route: 048
     Dates: start: 2012, end: 201405
  4. LYSANXIA [Concomitant]
     Active Substance: PRAZEPAM
     Dosage: 10 MG, QD
     Route: 048
     Dates: start: 2012, end: 201405
  5. SULFARLEM [Concomitant]
     Active Substance: ANETHOLTRITHION
     Dosage: 75 MG, QD
     Route: 048
     Dates: start: 20130510, end: 201405

REACTIONS (6)
  - Alanine aminotransferase increased [Recovering/Resolving]
  - Blood alkaline phosphatase increased [Recovering/Resolving]
  - Gamma-glutamyltransferase increased [Recovering/Resolving]
  - Pruritus [Recovered/Resolved]
  - Aspartate aminotransferase increased [Recovering/Resolving]
  - Abdominal pain [Recovered/Resolved]

NARRATIVE: CASE EVENT DATE: 201304
